FAERS Safety Report 20973530 (Version 1)
Quarter: 2022Q2

REPORT INFORMATION
  Report Type: Spontaneous
  Country: FR (occurrence: FR)
  Receive Date: 20220617
  Receipt Date: 20220617
  Transmission Date: 20220721
  Serious: Yes (Hospitalization, Other)
  Sender: FDA-Public Use
  Company Number: FR-AFSSAPS-BS20220924

PATIENT
  Age: 61 Year
  Sex: Male
  Weight: 55 kg

DRUGS (12)
  1. CEFUROXIME [Suspect]
     Active Substance: CEFUROXIME
     Indication: Bronchitis
     Dosage: 500 MILLIGRAM, ONCE A DAY (250MG TWICE A DAY)
     Route: 042
     Dates: start: 20220222, end: 20220301
  2. CLOPIDOGREL BISULFATE [Suspect]
     Active Substance: CLOPIDOGREL BISULFATE
     Indication: Ischaemic cardiomyopathy
     Dosage: 75 MILLIGRAM, ONCE A DAY
     Route: 048
     Dates: start: 2017, end: 20220316
  3. EZETIMIBE [Suspect]
     Active Substance: EZETIMIBE
     Indication: Ischaemic cardiomyopathy
     Dosage: 10 MILLIGRAM, ONCE A DAY
     Route: 048
     Dates: start: 20210519, end: 20220320
  4. BISOPROLOL FUMARATE [Suspect]
     Active Substance: BISOPROLOL FUMARATE
     Indication: Hypertension
     Dosage: 10 MILLIGRAM, ONCE A DAY
     Route: 048
     Dates: start: 20210519, end: 20220315
  5. ELIQUIS [Suspect]
     Active Substance: APIXABAN
     Indication: Pulmonary embolism
     Dosage: 10 MILLIGRAM, ONCE A DAY
     Route: 048
     Dates: start: 20211129, end: 20220316
  6. RAMIPRIL [Suspect]
     Active Substance: RAMIPRIL
     Indication: Hypertension
     Dosage: 5 MILLIGRAM, ONCE A DAY
     Route: 048
     Dates: end: 20220315
  7. HEPARIN CALCIUM [Suspect]
     Active Substance: HEPARIN CALCIUM
     Indication: Pulmonary embolism
     Dosage: UNK (ACCORDING TO ANTI XA)
     Route: 058
     Dates: start: 20220316, end: 20220330
  8. PIPERACILLIN SODIUM\TAZOBACTAM SODIUM [Suspect]
     Active Substance: PIPERACILLIN SODIUM\TAZOBACTAM SODIUM
     Indication: Septic shock
     Dosage: 16 GRAM, ONCE A DAY (4GX4/D)
     Route: 042
     Dates: start: 20220324, end: 20220408
  9. SPIKEVAX [Suspect]
     Active Substance: ELASOMERAN
     Indication: COVID-19 immunisation
     Dosage: 1 DOSAGE FORM, TOTAL
     Route: 030
     Dates: start: 20211230
  10. ALFUZOSIN [Suspect]
     Active Substance: ALFUZOSIN
     Indication: Benign prostatic hyperplasia
     Dosage: 2.5 MILLIGRAM, ONCE A DAY
     Route: 048
     Dates: start: 20210519, end: 20220329
  11. ROSUVASTATIN [Concomitant]
     Active Substance: ROSUVASTATIN
     Indication: Product used for unknown indication
     Dosage: UNK
     Route: 065
  12. LANSOPRAZOLE [Concomitant]
     Active Substance: LANSOPRAZOLE
     Indication: Product used for unknown indication
     Dosage: UNK
     Route: 065

REACTIONS (1)
  - Acquired haemophilia [Recovering/Resolving]

NARRATIVE: CASE EVENT DATE: 20220330
